FAERS Safety Report 13936237 (Version 1)
Quarter: 2017Q3

REPORT INFORMATION
  Report Type: Spontaneous
  Country: US (occurrence: US)
  Receive Date: 20170905
  Receipt Date: 20170905
  Transmission Date: 20171127
  Serious: No
  Sender: FDA-Public Use
  Company Number: None

PATIENT
  Age: 46 Year
  Sex: Female
  Weight: 60.75 kg

DRUGS (17)
  1. XANAX [Concomitant]
     Active Substance: ALPRAZOLAM
  2. VITAMIN C [Concomitant]
     Active Substance: ASCORBIC ACID
  3. OMEPRAZOLE. [Concomitant]
     Active Substance: OMEPRAZOLE
  4. ATIVAN [Concomitant]
     Active Substance: LORAZEPAM
  5. FISH OIL + D3 [Concomitant]
  6. OMEGA 3 [Concomitant]
     Active Substance: OMEGA-3 FATTY ACIDS
  7. TYLENOL [Concomitant]
     Active Substance: ACETAMINOPHEN
  8. PENTASA [Concomitant]
     Active Substance: MESALAMINE
  9. OSCAL 500/200 D-3 [Concomitant]
  10. LIDOCAINE. [Concomitant]
     Active Substance: LIDOCAINE
  11. CAPECITABINE. [Suspect]
     Active Substance: CAPECITABINE
     Indication: BREAST CANCER
     Route: 048
     Dates: start: 20170531, end: 20170901
  12. VITAMIN D3 [Concomitant]
     Active Substance: CHOLECALCIFEROL
  13. ADVIL [Concomitant]
     Active Substance: IBUPROFEN
  14. BUDESONIDE. [Concomitant]
     Active Substance: BUDESONIDE
  15. ZOFRAN [Concomitant]
     Active Substance: ONDANSETRON HYDROCHLORIDE
  16. ALEVE [Concomitant]
     Active Substance: NAPROXEN SODIUM
  17. BIOTIN [Concomitant]
     Active Substance: BIOTIN

REACTIONS (1)
  - Disease progression [None]
